FAERS Safety Report 13244323 (Version 1)
Quarter: 2017Q1

REPORT INFORMATION
  Report Type: Spontaneous
  Country: US (occurrence: US)
  Receive Date: 20170216
  Receipt Date: 20170216
  Transmission Date: 20170428
  Serious: No
  Sender: FDA-Public Use
  Company Number: US-RELYPSA-RLY2017000126

PATIENT
  Sex: Male

DRUGS (4)
  1. VELTASSA [Suspect]
     Active Substance: PATIROMER
     Indication: HYPERKALAEMIA
     Dosage: 8.4 G, QD
     Route: 048
     Dates: start: 20161227
  2. VELTASSA [Suspect]
     Active Substance: PATIROMER
     Dosage: 16.8 G, QD
     Route: 048
  3. INSULIN [Concomitant]
     Active Substance: INSULIN NOS
  4. VELTASSA [Suspect]
     Active Substance: PATIROMER
     Dosage: 8.4 G, BID
     Route: 048
     Dates: start: 201701

REACTIONS (2)
  - Product taste abnormal [Unknown]
  - Product solubility abnormal [Unknown]
